FAERS Safety Report 4879549-3 (Version None)
Quarter: 2006Q1

REPORT INFORMATION
  Report Type: 
  Country: None (occurrence: None)
  Receive Date: 20060111
  Receipt Date: 20051228
  Transmission Date: 20060701
  Serious: Yes (Hospitalization)
  Sender: FDA-Public Use
  Company Number: 220639

PATIENT
  Age: 64 Year
  Sex: Female
  Weight: 55 kg

DRUGS (3)
  1. RITUXIMAB (RITUXIMAB) CONC FOR SOLUTION FOR INFUSION [Suspect]
     Indication: CHRONIC LYMPHOCYTIC LEUKAEMIA
     Dosage: 785 MG, Q28D, INTRAVENOUS
     Route: 042
     Dates: start: 20051121
  2. FLUDARABINE PHOSPHATE [Suspect]
     Indication: CHRONIC LYMPHOCYTIC LEUKAEMIA
     Dosage: 39.25 MG, Q28D, INTRAVENOUS
     Route: 042
     Dates: start: 20051122
  3. CYCLOPHOSPHAMIDE [Suspect]
     Indication: CHRONIC LYMPHOCYTIC LEUKAEMIA
     Dosage: 392.5 MG, Q28D, INTRAVENOUS
     Route: 042
     Dates: start: 20051122

REACTIONS (1)
  - FEBRILE BONE MARROW APLASIA [None]
